FAERS Safety Report 8388551-9 (Version None)
Quarter: 2012Q2

REPORT INFORMATION
  Report Type: 
  Country: None (occurrence: None)
  Receive Date: 20120525
  Receipt Date: 20120511
  Transmission Date: 20120825
  Serious: Yes (Other)
  Sender: FDA-Public Use
  Company Number: CO-AMGEN-COLSP2012000832

PATIENT
  Age: 69 Year
  Sex: Female

DRUGS (7)
  1. RANITIDINE [Concomitant]
     Dosage: UNK
  2. ENBREL [Suspect]
     Indication: PSORIASIS
     Dosage: 50 MG, WEEKLY
     Route: 058
     Dates: start: 20090101
  3. INFLUENZA VACCINE [Suspect]
     Dosage: UNK
  4. HYOSCINE HBR HYT [Concomitant]
     Dosage: UNK
  5. OMEPRAZOLE [Concomitant]
     Dosage: UNK
  6. ENBREL [Suspect]
     Dosage: UNK
     Dates: start: 20110301
  7. AMITRIPTYLINE HCL [Concomitant]
     Dosage: UNK

REACTIONS (8)
  - MALAISE [None]
  - SUBCUTANEOUS ABSCESS [None]
  - FIBROMYALGIA [None]
  - BRONCHITIS [None]
  - CHROMATURIA [None]
  - DYSPNOEA [None]
  - URINARY TRACT INFECTION [None]
  - HELICOBACTER GASTRITIS [None]
